FAERS Safety Report 4397169-4 (Version None)
Quarter: 2004Q3

REPORT INFORMATION
  Report Type: 
  Country: None (occurrence: None)
  Receive Date: 20040714
  Receipt Date: 20040705
  Transmission Date: 20050211
  Serious: Yes (Other)
  Sender: FDA-Public Use
  Company Number: ES-ROCHE-373388

PATIENT
  Age: 45 Year
  Sex: Female

DRUGS (2)
  1. ROACUTAN [Suspect]
     Indication: ACNE
     Route: 048
     Dates: start: 20040315, end: 20040615
  2. ANTIDEPRESSANT NOS [Concomitant]
     Indication: DEPRESSION

REACTIONS (3)
  - MOUTH ULCERATION [None]
  - ORAL SOFT TISSUE DISORDER [None]
  - RHINORRHOEA [None]
